FAERS Safety Report 9379762 (Version 1)
Quarter: 2013Q3

REPORT INFORMATION
  Report Type: Spontaneous
  Country: FR (occurrence: FR)
  Receive Date: 20130702
  Receipt Date: 20130702
  Transmission Date: 20140515
  Serious: Yes (Hospitalization)
  Sender: FDA-Public Use
  Company Number: PHHY2013FR066566

PATIENT
  Age: 77 Year
  Sex: Male

DRUGS (11)
  1. LOXEN [Suspect]
     Dosage: UNK UKN, UNK
     Dates: start: 201203, end: 201203
  2. TRAMADOL [Suspect]
  3. ZOPHREN [Suspect]
     Dates: start: 201203, end: 201203
  4. LOVENOX [Suspect]
     Route: 058
     Dates: start: 201203, end: 201203
  5. ACUPAN [Suspect]
     Route: 058
     Dates: start: 201203, end: 201203
  6. CEFAMANDOLE [Suspect]
     Dosage: UNK UKN, UNK
     Route: 042
     Dates: start: 20120301, end: 20120301
  7. XENETIX [Concomitant]
     Dosage: UNK UKN, UNK
     Dates: start: 20120301, end: 201204
  8. XENETIX [Concomitant]
     Dosage: UNK UKN, UNK
     Dates: start: 201204
  9. BETADINE [Concomitant]
     Dosage: UNK UKN, UNK
  10. SMECTA ^DAE WOONG^ [Concomitant]
     Dosage: UNK UKN, UNK
  11. SPASFON [Concomitant]
     Dosage: UNK UKN, UNK

REACTIONS (3)
  - Toxic skin eruption [Recovered/Resolved]
  - Erythrosis [Recovered/Resolved]
  - Skin burning sensation [Recovered/Resolved]
